FAERS Safety Report 9587297 (Version 2)
Quarter: 2013Q4

REPORT INFORMATION
  Report Type: Spontaneous
  Country: PT (occurrence: PT)
  Receive Date: 20131003
  Receipt Date: 20131007
  Transmission Date: 20140711
  Serious: Yes (Hospitalization, Disabling)
  Sender: FDA-Public Use
  Company Number: PT-B.I. PHARMACEUTICALS,INC./RIDGEFIELD-2013-BI-30526PO

PATIENT
  Age: 75 Year
  Sex: Female

DRUGS (17)
  1. PRADAXA [Suspect]
     Indication: ATRIAL FIBRILLATION
     Dosage: 220 MG
     Dates: start: 201211
  2. CANESTEN [Concomitant]
  3. CONCOR [Concomitant]
  4. TRYPTIZOL [Concomitant]
  5. CRESTOR [Concomitant]
  6. UNISEDIL [Concomitant]
  7. PROPYCIL [Concomitant]
  8. EUTIROX [Concomitant]
  9. ULCERMIN [Concomitant]
  10. PENTOXIFILINE [Concomitant]
  11. IDEOS [Concomitant]
     Indication: CARDIAC FAILURE
  12. LASIX [Concomitant]
     Indication: CARDIAC FAILURE
  13. CLAVAMOX [Concomitant]
     Indication: RESPIRATORY TRACT INFECTION
     Dates: start: 20130329
  14. LEVOTUSS [Concomitant]
     Indication: RESPIRATORY TRACT INFECTION
     Dates: start: 20130329
  15. MAXILASE [Concomitant]
     Indication: RESPIRATORY TRACT INFECTION
     Dates: start: 20130329
  16. PARACETAMOL [Concomitant]
     Indication: RESPIRATORY TRACT INFECTION
     Dates: start: 20130329
  17. NOLOTIL [Concomitant]
     Indication: RESPIRATORY TRACT INFECTION
     Dosage: 1725 MG
     Dates: start: 20130329

REACTIONS (2)
  - Ischaemic stroke [Recovered/Resolved with Sequelae]
  - Respiratory tract infection [Unknown]
